FAERS Safety Report 4758552-8 (Version None)
Quarter: 2005Q3

REPORT INFORMATION
  Report Type: 
  Country: None (occurrence: None)
  Receive Date: 20050830
  Receipt Date: 20050830
  Transmission Date: 20060218
  Serious: Yes (Hospitalization)
  Sender: FDA-Public Use
  Company Number: None

PATIENT
  Age: 73 Year
  Sex: Male

DRUGS (2)
  1. LISINOPRIL [Suspect]
     Indication: RENAL FAILURE ACUTE
     Dosage: 20 MG PO DAILY
     Route: 048
  2. LISINOPRIL [Suspect]
     Indication: RENAL FAILURE CHRONIC
     Dosage: 20 MG PO DAILY
     Route: 048

REACTIONS (4)
  - CONFUSIONAL STATE [None]
  - DYSPNOEA [None]
  - FALL [None]
  - LOSS OF CONSCIOUSNESS [None]
